FAERS Safety Report 5605889-6 (Version None)
Quarter: 2008Q1

REPORT INFORMATION
  Report Type: 
  Country: None (occurrence: None)
  Receive Date: 20080125
  Receipt Date: 20080125
  Transmission Date: 20080703
  Serious: Yes (Disabling, Other)
  Sender: FDA-Public Use
  Company Number: None

PATIENT
  Sex: Female
  Weight: 61.2356 kg

DRUGS (3)
  1. ACCUTANE [Suspect]
     Indication: ACNE
     Dates: start: 19870101
  2. ACCUTANE [Suspect]
     Indication: ACNE
     Dates: start: 19910101
  3. ACCUTANE [Suspect]
     Indication: ACNE
     Dates: start: 19930101

REACTIONS (33)
  - ALOPECIA [None]
  - ARTHRALGIA [None]
  - BACTERIAL INFECTION [None]
  - BEDRIDDEN [None]
  - BLOOD CHOLESTEROL INCREASED [None]
  - DECREASED INTEREST [None]
  - DEPRESSION [None]
  - DRUG EXPOSURE BEFORE PREGNANCY [None]
  - DRY EYE [None]
  - FATIGUE [None]
  - FEELING ABNORMAL [None]
  - FEELINGS OF WORTHLESSNESS [None]
  - HEADACHE [None]
  - IMMUNE SYSTEM DISORDER [None]
  - JOINT SWELLING [None]
  - LIP DRY [None]
  - LIP EXFOLIATION [None]
  - LIP HAEMORRHAGE [None]
  - MENSTRUATION IRREGULAR [None]
  - MYALGIA [None]
  - OBSESSIVE THOUGHTS [None]
  - OEDEMA PERIPHERAL [None]
  - OVARIAN CYST [None]
  - OVULATION PAIN [None]
  - PAIN [None]
  - PAIN IN EXTREMITY [None]
  - POLYMENORRHOEA [None]
  - RAYNAUD'S PHENOMENON [None]
  - SUICIDAL IDEATION [None]
  - UTERINE DISORDER [None]
  - VIRAL INFECTION [None]
  - VULVOVAGINAL DRYNESS [None]
  - WEIGHT INCREASED [None]
